FAERS Safety Report 10066308 (Version 2)
Quarter: 2016Q4

REPORT INFORMATION
  Report Type: Spontaneous
  Country: US (occurrence: US)
  Receive Date: 20140408
  Receipt Date: 20161010
  Transmission Date: 20170206
  Serious: Yes (Death, Hospitalization, Other)
  Sender: FDA-Public Use
  Company Number: US-009507513-1404USA004099

PATIENT
  Sex: Male
  Weight: 113.38 kg

DRUGS (4)
  1. BYETTA [Suspect]
     Active Substance: EXENATIDE
     Indication: TYPE 2 DIABETES MELLITUS
     Dosage: 10 MICROGRAM, BID
     Route: 065
     Dates: start: 20090325, end: 20110410
  2. ONGLYZA [Suspect]
     Active Substance: SAXAGLIPTIN HYDROCHLORIDE
     Indication: TYPE 2 DIABETES MELLITUS
     Dosage: 5 MG, QD
     Route: 065
     Dates: start: 20110324, end: 20111027
  3. JANUVIA [Suspect]
     Active Substance: SITAGLIPTIN PHOSPHATE
     Indication: TYPE 2 DIABETES MELLITUS
     Dosage: 100 MG, QD
     Route: 048
     Dates: start: 20080611, end: 20090426
  4. BYETTA [Suspect]
     Active Substance: EXENATIDE
     Dosage: 100 MG, BID
     Route: 065
     Dates: start: 20110324, end: 20120319

REACTIONS (25)
  - Cardiomyopathy [Unknown]
  - Tendon operation [Unknown]
  - Gout [Unknown]
  - Pancreatic carcinoma metastatic [Unknown]
  - Coronary arterial stent insertion [Unknown]
  - Lipids increased [Unknown]
  - Death [Fatal]
  - Cholecystectomy [Unknown]
  - Coronary artery disease [Unknown]
  - Endocarditis [Unknown]
  - Inguinal hernia [Unknown]
  - Drug hypersensitivity [Unknown]
  - Osteoarthritis [Unknown]
  - Arthralgia [Unknown]
  - Bile duct stenosis [Unknown]
  - Bile duct stent insertion [Unknown]
  - Mitral valve replacement [Unknown]
  - Elbow operation [Unknown]
  - Stent placement [Unknown]
  - Overdose [Unknown]
  - Hypertension [Unknown]
  - Metastases to lymph nodes [Unknown]
  - Pancreatic carcinoma [Unknown]
  - Coronary artery bypass [Unknown]
  - Diabetic neuropathy [Unknown]

NARRATIVE: CASE EVENT DATE: 2012
